FAERS Safety Report 7821170-9 (Version None)
Quarter: 2011Q4

REPORT INFORMATION
  Report Type: 
  Country: None (occurrence: None)
  Receive Date: 20111018
  Receipt Date: 20111013
  Transmission Date: 20120403
  Serious: Yes (Hospitalization)
  Sender: FDA-Public Use
  Company Number: AT-ABBOTT-11P-009-0864189-00

PATIENT
  Age: 29 Year
  Sex: Male
  Weight: 39.9 kg

DRUGS (39)
  1. ZEMPLAR [Suspect]
     Indication: HYPERPARATHYROIDISM SECONDARY
     Dates: start: 20090526, end: 20090709
  2. ZEMPLAR [Suspect]
     Dates: start: 20090806, end: 20091020
  3. LACVOLAC [Concomitant]
     Indication: PRODUCT USED FOR UNKNOWN INDICATION
  4. THOMAPYRIN [Concomitant]
     Indication: PRODUCT USED FOR UNKNOWN INDICATION
     Dosage: BED
     Route: 048
     Dates: start: 20080306
  5. AGAFFIN [Concomitant]
     Indication: PRODUCT USED FOR UNKNOWN INDICATION
     Dosage: 2X1 TABLESPOON
     Route: 048
     Dates: start: 20100111, end: 20100208
  6. CARVEDILOL [Concomitant]
     Indication: PRODUCT USED FOR UNKNOWN INDICATION
     Route: 048
     Dates: start: 20100811, end: 20100904
  7. ITERIUM [Concomitant]
     Indication: PRODUCT USED FOR UNKNOWN INDICATION
     Route: 048
     Dates: start: 20100813, end: 20100909
  8. ZEMPLAR [Suspect]
     Dates: start: 20090709, end: 20090806
  9. ZEMPLAR [Suspect]
     Dates: start: 20091020, end: 20100126
  10. ZEMPLAR [Suspect]
     Dates: start: 20100126, end: 20100811
  11. ZEMPLAR [Suspect]
     Dates: start: 20110714, end: 20110927
  12. ARANESP [Concomitant]
     Indication: PRODUCT USED FOR UNKNOWN INDICATION
  13. EXFORGE HCT [Concomitant]
     Indication: PRODUCT USED FOR UNKNOWN INDICATION
     Dosage: 10/160/12.5 ONCE A DAY
     Route: 048
     Dates: start: 20100811
  14. ANTIPHOS [Concomitant]
     Indication: PRODUCT USED FOR UNKNOWN INDICATION
     Dosage: PER WEEK
     Route: 048
     Dates: start: 20080605, end: 20091008
  15. ZEMPLAR [Suspect]
     Dates: start: 20110113, end: 20110516
  16. MEXALEN [Concomitant]
     Indication: PRODUCT USED FOR UNKNOWN INDICATION
  17. DIOVAN [Concomitant]
     Indication: PRODUCT USED FOR UNKNOWN INDICATION
     Route: 048
     Dates: start: 20100603, end: 20100811
  18. NOMEXOR [Concomitant]
     Indication: PRODUCT USED FOR UNKNOWN INDICATION
     Route: 048
     Dates: start: 20100813
  19. RENVELA [Concomitant]
     Indication: PRODUCT USED FOR UNKNOWN INDICATION
     Route: 048
     Dates: start: 20101221
  20. ZEMPLAR [Suspect]
     Dates: start: 20110927
  21. METHYLPREDNISOLONE [Concomitant]
     Route: 048
     Dates: start: 20110331, end: 20110915
  22. BAYPRESS [Concomitant]
     Indication: PRODUCT USED FOR UNKNOWN INDICATION
     Route: 048
     Dates: start: 20100903, end: 20100904
  23. AMITRIPTYLINE HCL [Concomitant]
     Indication: PRODUCT USED FOR UNKNOWN INDICATION
     Route: 048
     Dates: start: 20100909
  24. CINACALCET HYDROCHLORIDE [Concomitant]
     Indication: PRODUCT USED FOR UNKNOWN INDICATION
     Route: 048
     Dates: start: 20110316, end: 20110405
  25. ZEMPLAR [Suspect]
     Dates: start: 20110517, end: 20110712
  26. LENDORM [Concomitant]
     Indication: PRODUCT USED FOR UNKNOWN INDICATION
     Route: 048
     Dates: start: 20110907
  27. LASIX [Concomitant]
     Indication: PRODUCT USED FOR UNKNOWN INDICATION
     Route: 048
     Dates: start: 20110915
  28. NEORECORMON [Concomitant]
     Indication: PRODUCT USED FOR UNKNOWN INDICATION
     Dosage: 1000 IE
     Route: 042
     Dates: start: 20070605, end: 20091117
  29. FERRLECIT [Concomitant]
     Indication: PRODUCT USED FOR UNKNOWN INDICATION
     Route: 042
     Dates: start: 20070807, end: 20101021
  30. LERCANIDIPINE [Concomitant]
     Indication: PRODUCT USED FOR UNKNOWN INDICATION
     Route: 048
     Dates: start: 20100703, end: 20100811
  31. METHYLPREDNISOLONE [Concomitant]
     Indication: PRODUCT USED FOR UNKNOWN INDICATION
  32. RENAGEL [Concomitant]
     Indication: PRODUCT USED FOR UNKNOWN INDICATION
     Route: 048
     Dates: start: 20090810, end: 20101221
  33. PANTOPRAZOLE SODIUM [Concomitant]
     Indication: PRODUCT USED FOR UNKNOWN INDICATION
     Route: 048
     Dates: start: 20100807
  34. LEXOTANIL [Concomitant]
     Indication: PRODUCT USED FOR UNKNOWN INDICATION
     Route: 048
     Dates: start: 20100813, end: 20110113
  35. ETALPHA [Concomitant]
     Indication: PRODUCT USED FOR UNKNOWN INDICATION
     Route: 048
     Dates: start: 20101111
  36. ARANESP [Concomitant]
     Route: 042
     Dates: start: 20091201
  37. DESLORATADINE [Concomitant]
     Indication: PRODUCT USED FOR UNKNOWN INDICATION
     Route: 048
     Dates: start: 20091020, end: 20100603
  38. FERMED [Concomitant]
     Indication: PRODUCT USED FOR UNKNOWN INDICATION
     Route: 042
     Dates: start: 20110111
  39. ITERIUM [Concomitant]
     Route: 048
     Dates: start: 20110409

REACTIONS (3)
  - HEADACHE [None]
  - PNEUMONIA [None]
  - HYPERCALCAEMIA [None]
